FAERS Safety Report 6117864-6 (Version None)
Quarter: 2009Q1

REPORT INFORMATION
  Report Type: 
  Country: None (occurrence: None)
  Receive Date: 20090314
  Receipt Date: 20090129
  Transmission Date: 20090719
  Serious: No
  Sender: FDA-Public Use
  Company Number: US-ABBOTT-09P-163-0501088-00

PATIENT
  Sex: Male
  Weight: 112.14 kg

DRUGS (13)
  1. HUMIRA 40 MG/ 70.8 ML PRE-FILLED SYRINGE [Suspect]
     Indication: PSORIASIS
     Route: 058
     Dates: start: 20080806
  2. HUMIRA 40 MG/ 70.8 ML PRE-FILLED SYRINGE [Suspect]
  3. PROTOPIC [Suspect]
     Indication: STASIS DERMATITIS
     Route: 061
     Dates: start: 20081101, end: 20081101
  4. HYDROCHLOROTHIAZIDE [Concomitant]
     Indication: HYPERTENSION
     Route: 048
  5. KLONOPIN [Concomitant]
     Indication: BIPOLAR DISORDER
  6. METHADONE HCL [Concomitant]
     Indication: DRUG USE FOR UNKNOWN INDICATION
  7. PERCOCET [Concomitant]
     Indication: DRUG USE FOR UNKNOWN INDICATION
  8. NEURONTIN [Concomitant]
     Indication: DRUG USE FOR UNKNOWN INDICATION
  9. LIPITOR [Concomitant]
     Indication: DRUG USE FOR UNKNOWN INDICATION
  10. CYMBALTA [Concomitant]
     Indication: DRUG USE FOR UNKNOWN INDICATION
  11. ABILIFY [Concomitant]
     Indication: BIPOLAR DISORDER
  12. PROTONIX [Concomitant]
     Indication: DRUG USE FOR UNKNOWN INDICATION
  13. NYZORIL CREAM [Concomitant]
     Indication: DERMATITIS
     Route: 061

REACTIONS (5)
  - PSORIASIS [None]
  - PUSTULAR PSORIASIS [None]
  - SKIN BURNING SENSATION [None]
  - SKIN EXFOLIATION [None]
  - STASIS DERMATITIS [None]
